FAERS Safety Report 6851198-7 (Version None)
Quarter: 2010Q3

REPORT INFORMATION
  Report Type: 
  Country: None (occurrence: None)
  Receive Date: 20100716
  Receipt Date: 20100707
  Transmission Date: 20110219
  Serious: Yes (Hospitalization)
  Sender: FDA-Public Use
  Company Number: US-AMGEN-QUU422950

PATIENT
  Sex: Female

DRUGS (1)
  1. ENBREL [Suspect]
     Indication: RHEUMATOID ARTHRITIS
     Route: 058
     Dates: start: 20050801

REACTIONS (5)
  - CEREBROVASCULAR ACCIDENT [None]
  - CONTUSION [None]
  - FALL [None]
  - OEDEMA PERIPHERAL [None]
  - PERIORBITAL HAEMATOMA [None]
